FAERS Safety Report 5954406-X (Version None)
Quarter: 2008Q4

REPORT INFORMATION
  Report Type: 
  Country: None (occurrence: None)
  Receive Date: 20081113
  Receipt Date: 20081113
  Transmission Date: 20090506
  Serious: Yes (Hospitalization)
  Sender: FDA-Public Use
  Company Number: None

PATIENT
  Sex: Female
  Weight: 86.2 kg

DRUGS (2)
  1. CARBOPLATIN [Suspect]
     Dosage: 820 MG
     Dates: start: 20070226, end: 20070226
  2. TAXOL [Suspect]
     Dosage: 340 MG
     Dates: end: 20070226

REACTIONS (5)
  - DEHYDRATION [None]
  - DYSPNOEA [None]
  - LUNG CONSOLIDATION [None]
  - NAUSEA [None]
  - VOMITING [None]
